FAERS Safety Report 20505850 (Version 1)
Quarter: 2022Q1

REPORT INFORMATION
  Report Type: Spontaneous
  Country: US (occurrence: US)
  Receive Date: 20220223
  Receipt Date: 20220223
  Transmission Date: 20220423
  Serious: No
  Sender: FDA-Public Use
  Company Number: US-GLENMARK PHARMACEUTICALS-2022GMK069655

PATIENT

DRUGS (1)
  1. HYDROCHLOROTHIAZIDE\TELMISARTAN [Suspect]
     Active Substance: HYDROCHLOROTHIAZIDE\TELMISARTAN
     Indication: Product used for unknown indication
     Dosage: UNK
     Route: 048
     Dates: start: 202112

REACTIONS (5)
  - Product administration error [Unknown]
  - Product physical issue [Unknown]
  - Product packaging difficult to open [Unknown]
  - Product blister packaging issue [Unknown]
  - No adverse event [Unknown]
